FAERS Safety Report 8322083-9 (Version None)
Quarter: 2012Q2

REPORT INFORMATION
  Report Type: 
  Country: None (occurrence: None)
  Receive Date: 20120426
  Receipt Date: 20120412
  Transmission Date: 20120825
  Serious: Yes (Life-Threatening, Hospitalization)
  Sender: FDA-Public Use
  Company Number: 2012MA005052

PATIENT
  Age: 65 Year
  Sex: Female

DRUGS (3)
  1. CARBOPLATIN [Suspect]
     Indication: SQUAMOUS CELL CARCINOMA
     Dosage: ;IV
     Route: 042
  2. VINORELBINE [Suspect]
     Indication: SQUAMOUS CELL CARCINOMA
     Dosage: ;PO
     Route: 048
  3. DOMPERIDONE [Concomitant]

REACTIONS (2)
  - NEUTROPENIC SEPSIS [None]
  - PANCYTOPENIA [None]
